FAERS Safety Report 11047084 (Version 1)
Quarter: 2015Q2

REPORT INFORMATION
  Report Type: Spontaneous
  Country: ZA (occurrence: None)
  Receive Date: 20150416
  Receipt Date: 20150416
  Transmission Date: 20150821
  Serious: Yes (Other)
  Sender: FDA-Public Use
  Company Number: ZA2015GSK050136

PATIENT
  Age: 6 Week
  Sex: Female
  Weight: 3.3 kg

DRUGS (1)
  1. ZIDOVUDINE. [Suspect]
     Active Substance: ZIDOVUDINE
     Indication: ANTIVIRAL PROPHYLAXIS

REACTIONS (16)
  - Glycosuria [None]
  - Weight decreased [None]
  - Lethargy [None]
  - Seizure [None]
  - Fanconi syndrome [None]
  - Incorrect dose administered [None]
  - Failure to thrive [None]
  - Dehydration [None]
  - Pallor [None]
  - Hypotension [None]
  - Hepatomegaly [None]
  - Proteinuria [None]
  - Aminoaciduria [None]
  - Metabolic acidosis [None]
  - Diarrhoea [None]
  - Cachexia [None]
